FAERS Safety Report 16649449 (Version 5)
Quarter: 2020Q1

REPORT INFORMATION
  Report Type: Report from Study
  Country: DE (occurrence: DE)
  Receive Date: 20190730
  Receipt Date: 20200306
  Transmission Date: 20200409
  Serious: Yes (Hospitalization, Other)
  Sender: FDA-Public Use
  Company Number: DE-SHIRE-DE201905444

PATIENT

DRUGS (5)
  1. TEDUGLUTIDE [Suspect]
     Active Substance: TEDUGLUTIDE
     Indication: SHORT-BOWEL SYNDROME
     Dosage: 0.30 MILLILITER, EVERY 2 DAYS
     Route: 058
     Dates: start: 20170426, end: 20200110
  2. TEDUGLUTIDE [Suspect]
     Active Substance: TEDUGLUTIDE
     Dosage: 0.30 MILLILITER, EVERY 2-3 DAYS
     Route: 058
     Dates: start: 20180426
  3. TEDUGLUTIDE [Suspect]
     Active Substance: TEDUGLUTIDE
     Dosage: 0.18 MILLILITER, EVERY 2 DAYS
     Route: 058
     Dates: start: 20190215
  4. TEDUGLUTIDE [Suspect]
     Active Substance: TEDUGLUTIDE
     Dosage: 0.3 MILLILITER, EVERY 2 DAYS OR EVERY 4 DAYS
     Route: 058
     Dates: start: 20170426
  5. TEDUGLUTIDE [Suspect]
     Active Substance: TEDUGLUTIDE
     Dosage: 0.18 MILLIGRAM, EVERY 2 DAYS
     Route: 058
     Dates: start: 20181106, end: 20190212

REACTIONS (7)
  - Neoplasm skin [Recovered/Resolved]
  - Eye infection viral [Not Recovered/Not Resolved]
  - Eye inflammation [Unknown]
  - Intentional product misuse [Unknown]
  - Abdominal pain [Not Recovered/Not Resolved]
  - Stoma complication [Recovered/Resolved with Sequelae]
  - Weight decreased [Recovered/Resolved]

NARRATIVE: CASE EVENT DATE: 20180924
